FAERS Safety Report 7207852-0 (Version None)
Quarter: 2010Q4

REPORT INFORMATION
  Report Type: 
  Country: None (occurrence: None)
  Receive Date: 20101221
  Receipt Date: 20101207
  Transmission Date: 20110411
  Serious: No
  Sender: FDA-Public Use
  Company Number: DSJ-2010-21694

PATIENT
  Age: 73 Year
  Sex: Male

DRUGS (5)
  1. AMLODIPINE BESYLATE AND OLMESARTAN MEDOXOMIL [Suspect]
     Indication: HYPERTENSION
     Dosage: 40/10 MG (1 IN 1 D), PER ORAL; 80/20 MG (1 IN 1 D), PER ORAL; 40/10 MG (1 IN 1 D), PER ORAL
     Route: 048
     Dates: start: 20080101, end: 20101201
  2. AMLODIPINE BESYLATE AND OLMESARTAN MEDOXOMIL [Suspect]
     Indication: HYPERTENSION
     Dosage: 40/10 MG (1 IN 1 D), PER ORAL; 80/20 MG (1 IN 1 D), PER ORAL; 40/10 MG (1 IN 1 D), PER ORAL
     Route: 048
     Dates: start: 20101201, end: 20101201
  3. AMLODIPINE BESYLATE AND OLMESARTAN MEDOXOMIL [Suspect]
     Indication: HYPERTENSION
     Dosage: 40/10 MG (1 IN 1 D), PER ORAL; 80/20 MG (1 IN 1 D), PER ORAL; 40/10 MG (1 IN 1 D), PER ORAL
     Route: 048
     Dates: start: 20101201
  4. GLIMEPIRIDE [Concomitant]
  5. PASSIFLORA INCARNATA [Concomitant]

REACTIONS (3)
  - BLOOD PRESSURE SYSTOLIC INCREASED [None]
  - DRUG INEFFECTIVE [None]
  - OVERDOSE [None]
